FAERS Safety Report 9086884 (Version 2)
Quarter: 2013Q1

REPORT INFORMATION
  Report Type: Spontaneous
  Country: FR (occurrence: FR)
  Receive Date: 20130217
  Receipt Date: 20130315
  Transmission Date: 20140127
  Serious: Yes (Other)
  Sender: FDA-Public Use
  Company Number: FR-JNJFOC-20130204076

PATIENT
  Age: 74 None
  Sex: Male

DRUGS (6)
  1. XARELTO [Suspect]
     Indication: CEREBROVASCULAR ACCIDENT PROPHYLAXIS
     Route: 048
     Dates: start: 20121001, end: 20121217
  2. XARELTO [Suspect]
     Indication: ATRIAL FIBRILLATION
     Route: 048
     Dates: start: 20121001, end: 20121217
  3. APROVEL [Concomitant]
     Dosage: 300
     Route: 065
  4. VELMETIA [Concomitant]
     Dosage: 50/1000
     Route: 065
  5. MONO TILDIEM [Concomitant]
     Route: 065
  6. INEGY [Concomitant]
     Dosage: 10/20
     Route: 065

REACTIONS (2)
  - Transient ischaemic attack [Recovered/Resolved with Sequelae]
  - Drug ineffective [Unknown]
